FAERS Safety Report 13440388 (Version 5)
Quarter: 2017Q2

REPORT INFORMATION
  Report Type: Report from Study
  Country: PL (occurrence: PL)
  Receive Date: 20170413
  Receipt Date: 20170616
  Transmission Date: 20170830
  Serious: Yes (Other)
  Sender: FDA-Public Use
  Company Number: PL-ROCHE-1915958

PATIENT
  Age: 45 Year
  Sex: Female
  Weight: 45.94 kg

DRUGS (11)
  1. OCRELIZUMAB [Suspect]
     Active Substance: OCRELIZUMAB
     Indication: RELAPSING-REMITTING MULTIPLE SCLEROSIS
     Dosage: 600 MG GIVEN AS DUAL INFUSIONS ON DAYS 1 AND 15 OF THE FIRST 24- WEEK TREATMENT CYCLE ?FURTHER DOSES
     Route: 042
     Dates: start: 20131219
  2. METHYLPREDNISOLONE. [Concomitant]
     Active Substance: METHYLPREDNISOLONE
     Indication: PREMEDICATION
     Dosage: ADMINISTERED ON THE SAME DATES AS BLINDED AND OPEN LABEL OCRELIZUMAB
     Route: 065
     Dates: start: 20120125, end: 20170313
  3. INTERFERON BETA-1A [Suspect]
     Active Substance: INTERFERON BETA-1A
     Indication: RELAPSING-REMITTING MULTIPLE SCLEROSIS
     Dosage: DOSING AS PER PROTOCOL?THE LAST DOSE OF BLINDED INTERFERON BETA 1-A WAS ON 18/DEC/2013
     Route: 058
     Dates: start: 20120125, end: 20131218
  4. LORATADYNA [Concomitant]
     Indication: PREMEDICATION
     Dosage: ADMINISTERED ON THE SAME DATES AS BLINDED (FROM WEEK 24) AND OPEN LABEL OCRELIZUMAB
     Route: 065
     Dates: start: 20120711, end: 20170313
  5. PLACEBO [Suspect]
     Active Substance: UNSPECIFIED INGREDIENT
     Indication: RELAPSING-REMITTING MULTIPLE SCLEROSIS
     Dosage: GIVEN AS DUAL INFUSIONS ON DAYS 1 AND 15 OF THE FIRST 24- WEEK TREATMENT CYCLE AND AS SINGLE INFUSIO
     Route: 042
     Dates: start: 20120125, end: 20130612
  6. IBUPROM MAX [Concomitant]
     Indication: PREMEDICATION
     Dosage: ADMINISTERED ON THE SAME DATES AS BLINDED AND OPEN LABEL OCRELIZUMAB
     Route: 065
     Dates: start: 20120125
  7. IBUPROM MAX [Concomitant]
     Route: 065
     Dates: start: 20170313
  8. LORATAN [Concomitant]
     Indication: PREMEDICATION
     Dosage: FURTHER DOSE ON 09/FEB/2012
     Route: 065
     Dates: start: 20120125
  9. OCRELIZUMAB [Suspect]
     Active Substance: OCRELIZUMAB
     Dosage: SINGLE INFUSIONS ON DAY 1 FOR EACH 24-WEEK TREATMENT CYCLE, AFTER CYCLE 1.?19/NOV/2014 (WEEK 48; LOT
     Route: 042
     Dates: start: 20140604
  10. PARACETAMOL [Concomitant]
     Active Substance: ACETAMINOPHEN
     Route: 065
     Dates: start: 201410
  11. PARACETAMOL [Concomitant]
     Active Substance: ACETAMINOPHEN
     Route: 065
     Dates: start: 20120206, end: 20120206

REACTIONS (1)
  - Breast cancer [Recovered/Resolved]

NARRATIVE: CASE EVENT DATE: 20170303
